FAERS Safety Report 25422921 (Version 1)
Quarter: 2025Q2

REPORT INFORMATION
  Report Type: Spontaneous
  Country: JP (occurrence: JP)
  Receive Date: 20250611
  Receipt Date: 20250611
  Transmission Date: 20250716
  Serious: Yes (Other)
  Sender: PFIZER
  Company Number: JP-PFIZER INC-PV202500066344

PATIENT
  Age: 59 Year
  Sex: Male
  Weight: 48 kg

DRUGS (69)
  1. LEVOLEUCOVORIN CALCIUM [Suspect]
     Active Substance: LEVOLEUCOVORIN CALCIUM
     Indication: Rectal cancer stage IV
  2. LEVOLEUCOVORIN CALCIUM [Suspect]
     Active Substance: LEVOLEUCOVORIN CALCIUM
  3. LEVOLEUCOVORIN CALCIUM [Suspect]
     Active Substance: LEVOLEUCOVORIN CALCIUM
  4. LEVOLEUCOVORIN CALCIUM [Suspect]
     Active Substance: LEVOLEUCOVORIN CALCIUM
  5. LEVOLEUCOVORIN CALCIUM [Suspect]
     Active Substance: LEVOLEUCOVORIN CALCIUM
  6. LEVOLEUCOVORIN CALCIUM [Suspect]
     Active Substance: LEVOLEUCOVORIN CALCIUM
  7. LEVOLEUCOVORIN CALCIUM [Suspect]
     Active Substance: LEVOLEUCOVORIN CALCIUM
  8. LEVOLEUCOVORIN CALCIUM [Suspect]
     Active Substance: LEVOLEUCOVORIN CALCIUM
  9. LEVOLEUCOVORIN CALCIUM [Suspect]
     Active Substance: LEVOLEUCOVORIN CALCIUM
  10. LEVOLEUCOVORIN CALCIUM [Suspect]
     Active Substance: LEVOLEUCOVORIN CALCIUM
  11. LEVOLEUCOVORIN CALCIUM [Suspect]
     Active Substance: LEVOLEUCOVORIN CALCIUM
  12. LEVOLEUCOVORIN CALCIUM [Suspect]
     Active Substance: LEVOLEUCOVORIN CALCIUM
  13. OXALIPLATIN [Suspect]
     Active Substance: OXALIPLATIN
     Indication: Rectal cancer stage IV
  14. OXALIPLATIN [Suspect]
     Active Substance: OXALIPLATIN
  15. OXALIPLATIN [Suspect]
     Active Substance: OXALIPLATIN
  16. OXALIPLATIN [Suspect]
     Active Substance: OXALIPLATIN
  17. OXALIPLATIN [Suspect]
     Active Substance: OXALIPLATIN
  18. OXALIPLATIN [Suspect]
     Active Substance: OXALIPLATIN
  19. OXALIPLATIN [Suspect]
     Active Substance: OXALIPLATIN
  20. OXALIPLATIN [Suspect]
     Active Substance: OXALIPLATIN
  21. OXALIPLATIN [Suspect]
     Active Substance: OXALIPLATIN
  22. OXALIPLATIN [Suspect]
     Active Substance: OXALIPLATIN
  23. OXALIPLATIN [Suspect]
     Active Substance: OXALIPLATIN
  24. OXALIPLATIN [Suspect]
     Active Substance: OXALIPLATIN
  25. BEVACIZUMAB [Suspect]
     Active Substance: BEVACIZUMAB
     Indication: Rectal cancer stage IV
  26. BEVACIZUMAB [Suspect]
     Active Substance: BEVACIZUMAB
  27. BEVACIZUMAB [Suspect]
     Active Substance: BEVACIZUMAB
  28. BEVACIZUMAB [Suspect]
     Active Substance: BEVACIZUMAB
  29. BEVACIZUMAB [Suspect]
     Active Substance: BEVACIZUMAB
  30. BEVACIZUMAB [Suspect]
     Active Substance: BEVACIZUMAB
  31. BEVACIZUMAB [Suspect]
     Active Substance: BEVACIZUMAB
  32. BEVACIZUMAB [Suspect]
     Active Substance: BEVACIZUMAB
  33. BEVACIZUMAB [Suspect]
     Active Substance: BEVACIZUMAB
  34. BEVACIZUMAB [Suspect]
     Active Substance: BEVACIZUMAB
  35. BEVACIZUMAB [Suspect]
     Active Substance: BEVACIZUMAB
  36. BEVACIZUMAB [Suspect]
     Active Substance: BEVACIZUMAB
  37. FLUOROURACIL [Suspect]
     Active Substance: FLUOROURACIL
     Indication: Rectal cancer stage IV
     Route: 042
  38. FLUOROURACIL [Suspect]
     Active Substance: FLUOROURACIL
     Route: 042
  39. FLUOROURACIL [Suspect]
     Active Substance: FLUOROURACIL
     Route: 042
  40. FLUOROURACIL [Suspect]
     Active Substance: FLUOROURACIL
     Route: 042
  41. FLUOROURACIL [Suspect]
     Active Substance: FLUOROURACIL
     Route: 042
  42. FLUOROURACIL [Suspect]
     Active Substance: FLUOROURACIL
     Route: 042
  43. FLUOROURACIL [Suspect]
     Active Substance: FLUOROURACIL
     Route: 042
  44. FLUOROURACIL [Suspect]
     Active Substance: FLUOROURACIL
     Route: 042
  45. FLUOROURACIL [Suspect]
     Active Substance: FLUOROURACIL
     Route: 042
  46. FLUOROURACIL [Suspect]
     Active Substance: FLUOROURACIL
     Route: 042
  47. FLUOROURACIL [Suspect]
     Active Substance: FLUOROURACIL
     Route: 042
  48. FLUOROURACIL [Suspect]
     Active Substance: FLUOROURACIL
     Route: 042
  49. FLUOROURACIL [Suspect]
     Active Substance: FLUOROURACIL
     Route: 042
  50. FLUOROURACIL [Suspect]
     Active Substance: FLUOROURACIL
     Route: 042
  51. FLUOROURACIL [Suspect]
     Active Substance: FLUOROURACIL
     Route: 042
  52. FLUOROURACIL [Suspect]
     Active Substance: FLUOROURACIL
     Route: 042
  53. FLUOROURACIL [Suspect]
     Active Substance: FLUOROURACIL
     Route: 042
  54. FLUOROURACIL [Suspect]
     Active Substance: FLUOROURACIL
     Route: 042
  55. FLUOROURACIL [Suspect]
     Active Substance: FLUOROURACIL
     Route: 042
  56. FLUOROURACIL [Suspect]
     Active Substance: FLUOROURACIL
     Route: 042
  57. FLUOROURACIL [Suspect]
     Active Substance: FLUOROURACIL
     Route: 042
  58. FLUOROURACIL [Suspect]
     Active Substance: FLUOROURACIL
     Route: 042
  59. FLUOROURACIL [Suspect]
     Active Substance: FLUOROURACIL
     Route: 042
  60. FLUOROURACIL [Suspect]
     Active Substance: FLUOROURACIL
     Route: 042
  61. FOSAPREPITANT [Concomitant]
     Active Substance: FOSAPREPITANT
  62. PALONOSETRON [Concomitant]
     Active Substance: PALONOSETRON
  63. DEXAMETHASONE [Concomitant]
     Active Substance: DEXAMETHASONE
  64. DARBEPOETIN ALFA [Concomitant]
     Active Substance: DARBEPOETIN ALFA
  65. HEPARIN [Concomitant]
     Active Substance: HEPARIN SODIUM
  66. NAFAMOSTAT MESYLATE [Concomitant]
     Active Substance: NAFAMOSTAT MESYLATE
  67. TENELIGLIPTIN [Concomitant]
     Active Substance: TENELIGLIPTIN
  68. AMLODIPINE [Concomitant]
     Active Substance: AMLODIPINE BESYLATE
  69. ENTECAVIR [Concomitant]
     Active Substance: ENTECAVIR

REACTIONS (4)
  - Thrombocytopenia [Unknown]
  - Neuropathy peripheral [Unknown]
  - Anaemia [Unknown]
  - Neutropenia [Unknown]
